FAERS Safety Report 20644552 (Version 2)
Quarter: 2022Q2

REPORT INFORMATION
  Report Type: Spontaneous
  Country: US (occurrence: US)
  Receive Date: 20220328
  Receipt Date: 20220403
  Transmission Date: 20220720
  Serious: No
  Sender: FDA-Public Use
  Company Number: US-SANOFI-01031804

PATIENT
  Age: 42 Year
  Sex: Female

DRUGS (1)
  1. ADMELOG [Suspect]
     Active Substance: INSULIN LISPRO
     Indication: Type 2 diabetes mellitus
     Dosage: DOSE: 5-7 UNITS FREQUENCY: 3-5 TIMES DAILY

REACTIONS (5)
  - Underweight [Unknown]
  - Rash [Unknown]
  - Pollakiuria [Unknown]
  - Unevaluable event [Unknown]
  - Blood glucose increased [Unknown]
